FAERS Safety Report 5493170-8 (Version None)
Quarter: 2007Q4

REPORT INFORMATION
  Report Type: 
  Country: None (occurrence: None)
  Receive Date: 20071022
  Receipt Date: 20071022
  Transmission Date: 20080405
  Serious: Yes (Life-Threatening, Hospitalization, Disabling)
  Sender: FDA-Public Use
  Company Number: None

PATIENT
  Sex: Female
  Weight: 56 kg

DRUGS (10)
  1. DAPTOMYCIN [Suspect]
     Indication: BACTERAEMIA
     Dosage: 330 MG Q 24 HRS IV
     Route: 042
     Dates: start: 20070907, end: 20071009
  2. RIFAMPIN [Suspect]
     Dosage: 300 MG Q 12 HRS PO
     Route: 048
     Dates: start: 20070907, end: 20071009
  3. PYRIDIUM [Concomitant]
  4. PROTONIX [Concomitant]
  5. COUMADIN [Concomitant]
  6. MEGACE [Concomitant]
  7. NORCO [Concomitant]
  8. DILTIAZEM [Concomitant]
  9. ADVAIR DISKUS 100/50 [Concomitant]
  10. REGLAN [Concomitant]

REACTIONS (2)
  - LUNG INFILTRATION [None]
  - OXYGEN SATURATION DECREASED [None]
